FAERS Safety Report 18590756 (Version 3)
Quarter: 2020Q4

REPORT INFORMATION
  Report Type: Spontaneous
  Country: BR (occurrence: BR)
  Receive Date: 20201208
  Receipt Date: 20201224
  Transmission Date: 20210114
  Serious: Yes (Other)
  Sender: FDA-Public Use
  Company Number: BR-AMGEN-BRASP2020197552

PATIENT
  Age: 7 Year
  Sex: Male

DRUGS (1)
  1. BLINCYTO [Suspect]
     Active Substance: BLINATUMOMAB
     Indication: B PRECURSOR TYPE ACUTE LEUKAEMIA
     Dosage: UNK
     Route: 065
     Dates: start: 20201130

REACTIONS (9)
  - Hypophagia [Unknown]
  - Anaemia [Unknown]
  - Blood pressure increased [Unknown]
  - Thrombocytopenia [Unknown]
  - Infusion site haemorrhage [Unknown]
  - Conjunctival haemorrhage [Unknown]
  - Blast cell count increased [Unknown]
  - Muscle atrophy [Unknown]
  - Rash [Not Recovered/Not Resolved]

NARRATIVE: CASE EVENT DATE: 2020
